FAERS Safety Report 11108026 (Version 6)
Quarter: 2015Q4

REPORT INFORMATION
  Report Type: Report from Study
  Country: AU (occurrence: AU)
  Receive Date: 20150512
  Receipt Date: 20151203
  Transmission Date: 20160304
  Serious: Yes (Hospitalization, Other)
  Sender: FDA-Public Use
  Company Number: AU-GLAXOSMITHKLINE-AU2015057880

PATIENT
  Age: 77 Year
  Sex: Male
  Weight: 93 kg

DRUGS (9)
  1. ELTROMBOPAG [Suspect]
     Active Substance: ELTROMBOPAG
     Indication: THROMBOCYTOPENIA
  2. TEMAZEPAM. [Concomitant]
     Active Substance: TEMAZEPAM
     Indication: INSOMNIA
     Route: 048
     Dates: start: 20150427, end: 20150427
  3. FUROSEMIDE. [Concomitant]
     Active Substance: FUROSEMIDE
     Indication: FLUID OVERLOAD
     Dosage: 40 MG, PRN
     Route: 042
     Dates: start: 20150427, end: 20150428
  4. OXAZEPAM. [Concomitant]
     Active Substance: OXAZEPAM
     Indication: PROPHYLAXIS
     Dosage: 15 MG, PRN
     Route: 048
     Dates: start: 20150428, end: 20150501
  5. CEFEPIME [Concomitant]
     Active Substance: CEFEPIME HYDROCHLORIDE
     Indication: INFECTION
     Dosage: 2 G, BID
     Route: 048
     Dates: start: 20150427, end: 20150430
  6. DEXAMETHASONE. [Concomitant]
     Active Substance: DEXAMETHASONE
     Indication: SEPSIS
     Dosage: 40 MG, QD
     Route: 042
     Dates: start: 20150429, end: 20150429
  7. PANTOPRAZOLE [Concomitant]
     Active Substance: PANTOPRAZOLE SODIUM
     Indication: PROPHYLAXIS
     Dosage: 4 MG, PRN
     Route: 048
     Dates: start: 20150430, end: 20150503
  8. AZACITIDINE. [Suspect]
     Active Substance: AZACITIDINE
     Indication: MYELODYSPLASTIC SYNDROME
     Dosage: UNK
     Dates: start: 20150318
  9. ELTROMBOPAG [Suspect]
     Active Substance: ELTROMBOPAG
     Indication: MYELODYSPLASTIC SYNDROME
     Dosage: 200 MG, QD
     Route: 048
     Dates: start: 20150318, end: 20150501

REACTIONS (2)
  - Hepatic failure [Recovered/Resolved]
  - Enterococcal infection [Recovered/Resolved with Sequelae]

NARRATIVE: CASE EVENT DATE: 20150427
